FAERS Safety Report 12569727 (Version 1)
Quarter: 2016Q3

REPORT INFORMATION
  Report Type: Spontaneous
  Country: US (occurrence: None)
  Receive Date: 20160718
  Receipt Date: 20160718
  Transmission Date: 20161109
  Serious: Yes (Disabling)
  Sender: FDA-Public Use
  Company Number: None

PATIENT
  Age: 66 Year
  Sex: Male
  Weight: 90.72 kg

DRUGS (8)
  1. CLONAZEPAM. [Concomitant]
     Active Substance: CLONAZEPAM
  2. CARVEDILOL. [Concomitant]
     Active Substance: CARVEDILOL
  3. BUPRION [Concomitant]
  4. SIMVASTATIN. [Concomitant]
     Active Substance: SIMVASTATIN
  5. ENBREL [Concomitant]
     Active Substance: ETANERCEPT
  6. ASPIRIN. [Concomitant]
     Active Substance: ASPIRIN
  7. RANITIDINE. [Concomitant]
     Active Substance: RANITIDINE
  8. OTEZLA [Suspect]
     Active Substance: APREMILAST
     Indication: PROSTATIC SPECIFIC ANTIGEN
     Route: 048
     Dates: start: 20160414, end: 20160713

REACTIONS (1)
  - Muscle spasms [None]

NARRATIVE: CASE EVENT DATE: 20160706
